FAERS Safety Report 7208298-1 (Version None)
Quarter: 2010Q4

REPORT INFORMATION
  Report Type: 
  Country: None (occurrence: None)
  Receive Date: 20101126
  Receipt Date: 20100825
  Transmission Date: 20110411
  Serious: Yes (Hospitalization)
  Sender: FDA-Public Use
  Company Number: 313793

PATIENT
  Age: 53 Year
  Sex: Male
  Weight: 111.1 kg

DRUGS (7)
  1. VICTOZA [Suspect]
     Indication: TYPE 2 DIABETES MELLITUS
     Dosage: 18 MG, SINGLE SUBCUTANEOUS
     Route: 058
     Dates: start: 20100824, end: 20100824
  2. ACTOS [Concomitant]
  3. DIOVAN [Concomitant]
  4. SIMCOR (SIMVASTATIN) [Concomitant]
  5. TRILIPIX [Concomitant]
  6. METFORMIN (METFORMIN) [Concomitant]
  7. GLIPIZIDE [Concomitant]

REACTIONS (7)
  - ABDOMINAL DISCOMFORT [None]
  - ACCIDENTAL OVERDOSE [None]
  - BLOOD GLUCOSE DECREASED [None]
  - GASTROOESOPHAGEAL REFLUX DISEASE [None]
  - HEADACHE [None]
  - NAUSEA [None]
  - VOMITING [None]
